FAERS Safety Report 8340490 (Version 5)
Quarter: 2012Q4

REPORT INFORMATION
  Report Type: 
  Country: AU (occurrence: AU)
  Receive Date: 20120117
  Receipt Date: 20121207
  Transmission Date: 20130627
  Serious: Yes (Death)
  Sender: FDA-Public Use
  Company Number: AU-ROCHE-1030815

PATIENT

DRUGS (1)
  1. TENECTEPLASE [Suspect]
     Indication: ISCHAEMIC STROKE
     Route: 040

REACTIONS (1)
  - Pneumonia aspiration [Fatal]
